FAERS Safety Report 9251253 (Version 1)
Quarter: 2013Q2

REPORT INFORMATION
  Report Type: Spontaneous
  Country: US (occurrence: US)
  Receive Date: 20130424
  Receipt Date: 20130424
  Transmission Date: 20140414
  Serious: Yes (Other)
  Sender: FDA-Public Use
  Company Number: US-PFIZER INC-2013126920

PATIENT
  Age: 28 Year
  Sex: Female
  Weight: 79.37 kg

DRUGS (2)
  1. SERTRALINE HCL [Suspect]
     Indication: POST-TRAUMATIC STRESS DISORDER
     Dosage: UNK
     Route: 048
     Dates: start: 200110
  2. SERTRALINE HCL [Suspect]
     Dosage: 150 MG DAILY
     Route: 048

REACTIONS (3)
  - Schizophrenia, paranoid type [Unknown]
  - Mental status changes [Unknown]
  - Catatonia [Unknown]
